FAERS Safety Report 8996598 (Version 1)
Quarter: 2013Q1

REPORT INFORMATION
  Report Type: Report from Study
  Country: CN (occurrence: CN)
  Receive Date: 20130104
  Receipt Date: 20130104
  Transmission Date: 20140127
  Serious: Yes (Death, Hospitalization, Other)
  Sender: FDA-Public Use
  Company Number: CN-BAYER-2012-135356

PATIENT
  Age: 48 Year
  Sex: Male

DRUGS (1)
  1. SORAFENIB (RAF KINASE INHIBITOR) [Suspect]
     Indication: HEPATIC CANCER
     Dosage: 800 M DAILY
     Dates: start: 20120704

REACTIONS (19)
  - Death [Fatal]
  - Coma hepatic [None]
  - Chronic hepatic failure [None]
  - Hepatic cirrhosis [None]
  - Palmar-plantar erythrodysaesthesia syndrome [None]
  - Hypertension [None]
  - Diarrhoea [None]
  - Hypersplenism [None]
  - Fatigue [None]
  - Confusional state [None]
  - Mental status changes [None]
  - Decreased appetite [None]
  - Poor quality sleep [None]
  - Chromaturia [None]
  - Diarrhoea [None]
  - Faeces discoloured [None]
  - Lethargy [None]
  - Jaundice [None]
  - Ocular icterus [None]
